FAERS Safety Report 7459680-9 (Version None)
Quarter: 2011Q2

REPORT INFORMATION
  Report Type: 
  Country: None (occurrence: None)
  Receive Date: 20110505
  Receipt Date: 20110422
  Transmission Date: 20111010
  Serious: Yes (Hospitalization, Other)
  Sender: FDA-Public Use
  Company Number: US-ELI_LILLY_AND_COMPANY-US201101005356

PATIENT
  Sex: Female

DRUGS (9)
  1. FORTEO [Suspect]
     Indication: OSTEOPOROSIS
     Dosage: 20 UG, QD
     Dates: start: 20100901
  2. FORTEO [Suspect]
     Dosage: 20 UG, QD
  3. MAGNESIUM [Concomitant]
  4. FORTEO [Suspect]
     Dosage: 20 UG, QD
  5. LOVAZA [Concomitant]
  6. VITAMIN D [Concomitant]
  7. CALCIUM [Concomitant]
  8. DIOVAN [Concomitant]
     Indication: BLOOD PRESSURE
     Dosage: UNK, UNKNOWN
     Route: 065
  9. ANALGESICS [Concomitant]

REACTIONS (7)
  - HAIR GROWTH ABNORMAL [None]
  - HOSPITALISATION [None]
  - PAIN [None]
  - ARTHRALGIA [None]
  - ANKLE FRACTURE [None]
  - HIP FRACTURE [None]
  - FALL [None]
